FAERS Safety Report 5360368-9 (Version None)
Quarter: 2007Q2

REPORT INFORMATION
  Report Type: 
  Country: None (occurrence: None)
  Receive Date: 20070618
  Receipt Date: 20070606
  Transmission Date: 20071010
  Serious: Yes (Death, Hospitalization)
  Sender: FDA-Public Use
  Company Number: US-KINGPHARMUSA00001-K200700691

PATIENT

DRUGS (4)
  1. ALTACE [Suspect]
     Indication: CARDIAC FAILURE
     Dosage: 1 TABLET, QD
  2. HYDROCHLOROTHIAZIDE [Suspect]
     Indication: CARDIAC FAILURE
     Dosage: 1 TABLET, QD
  3. AMARYL [Concomitant]
  4. FENOFIBRATE [Concomitant]

REACTIONS (8)
  - ACUTE PULMONARY OEDEMA [None]
  - BLOOD CREATININE INCREASED [None]
  - CARDIAC FAILURE [None]
  - HEPATIC FAILURE [None]
  - IMMUNOGLOBULINS INCREASED [None]
  - RENAL FAILURE [None]
  - TOXIC EPIDERMAL NECROLYSIS [None]
  - TRANSAMINASES INCREASED [None]
